FAERS Safety Report 19881355 (Version 1)
Quarter: 2021Q3

REPORT INFORMATION
  Report Type: Spontaneous
  Country: CA (occurrence: CA)
  Receive Date: 20210924
  Receipt Date: 20210924
  Transmission Date: 20211014
  Serious: Yes (Other)
  Sender: FDA-Public Use
  Company Number: CA-TEVA-2021-CA-1956511

PATIENT
  Age: 47 Year
  Sex: Male

DRUGS (19)
  1. CEFTRIAXONE. [Suspect]
     Active Substance: CEFTRIAXONE
     Indication: POSTOPERATIVE CARE
     Dosage: 1 GRAM DAILY;
     Route: 042
  2. FENTANYL. [Suspect]
     Active Substance: FENTANYL
     Indication: ABDOMINAL PAIN LOWER
  3. MORPHINE SULFATE. [Suspect]
     Active Substance: MORPHINE SULFATE
     Indication: DRUG USE DISORDER
     Dosage: 600 MILLIGRAM DAILY;
     Route: 048
  4. HYDROMORPHONE HYDROCHLORIDE. [Suspect]
     Active Substance: HYDROMORPHONE HYDROCHLORIDE
     Route: 042
  5. KETAMINE [Suspect]
     Active Substance: KETAMINE
     Indication: ABDOMINAL PAIN LOWER
     Route: 041
  6. METRONIDAZOLE. [Suspect]
     Active Substance: METRONIDAZOLE
     Indication: POSTOPERATIVE CARE
     Dosage: 1000 MILLIGRAM DAILY;
     Route: 042
  7. MORPHINE SULFATE. [Suspect]
     Active Substance: MORPHINE SULFATE
     Dosage: 400 MILLIGRAM DAILY;
     Route: 048
  8. MORPHINE SULFATE. [Suspect]
     Active Substance: MORPHINE SULFATE
     Indication: DRUG WITHDRAWAL SYNDROME
     Route: 048
  9. HYDROMORPHONE HYDROCHLORIDE. [Suspect]
     Active Substance: HYDROMORPHONE HYDROCHLORIDE
     Indication: DRUG WITHDRAWAL SYNDROME
     Route: 042
  10. MORPHINE [Suspect]
     Active Substance: MORPHINE
     Indication: DRUG USE DISORDER
  11. DIAMORPHINE HYDROCHLORIDE [Concomitant]
     Active Substance: DIACETYLMORPHINE HYDROCHLORIDE
     Indication: DRUG USE DISORDER
     Dosage: 1000 MILLIGRAM DAILY;
     Route: 042
  12. HYDROMORPHONE HYDROCHLORIDE. [Suspect]
     Active Substance: HYDROMORPHONE HYDROCHLORIDE
     Indication: DRUG WITHDRAWAL SYNDROME
     Route: 065
  13. HYDROMORPHONE HYDROCHLORIDE. [Suspect]
     Active Substance: HYDROMORPHONE HYDROCHLORIDE
     Route: 042
  14. HYDROMORPHONE HYDROCHLORIDE. [Suspect]
     Active Substance: HYDROMORPHONE HYDROCHLORIDE
     Route: 042
  15. FENTANYL. [Suspect]
     Active Substance: FENTANYL
     Indication: DRUG WITHDRAWAL SYNDROME
     Route: 065
  16. MORPHINE [Suspect]
     Active Substance: MORPHINE
     Indication: ABDOMINAL PAIN LOWER
     Route: 042
  17. MORPHINE SULFATE. [Suspect]
     Active Substance: MORPHINE SULFATE
     Dosage: 300 MILLIGRAM DAILY;
     Route: 048
  18. MORPHINE SULFATE. [Suspect]
     Active Substance: MORPHINE SULFATE
     Indication: ABDOMINAL PAIN LOWER
     Dosage: 700 MILLIGRAM DAILY;
     Route: 048
  19. HYDROMORPHONE HYDROCHLORIDE. [Suspect]
     Active Substance: HYDROMORPHONE HYDROCHLORIDE
     Route: 042

REACTIONS (9)
  - Drug withdrawal syndrome [Recovered/Resolved]
  - Abdominal tenderness [Recovered/Resolved]
  - Drug tolerance [Recovered/Resolved]
  - Hypertension [Recovered/Resolved]
  - Drug ineffective [Recovered/Resolved]
  - Nausea [Recovered/Resolved]
  - Inadequate analgesia [Recovered/Resolved]
  - Abdominal pain [Recovered/Resolved]
  - Somnolence [Recovered/Resolved]
